FAERS Safety Report 7606559-5 (Version None)
Quarter: 2011Q3

REPORT INFORMATION
  Report Type: 
  Country: None (occurrence: None)
  Receive Date: 20110713
  Receipt Date: 20110701
  Transmission Date: 20111222
  Serious: Yes (Hospitalization, Other)
  Sender: FDA-Public Use
  Company Number: PHFR2011GB04031

PATIENT
  Sex: Female
  Weight: 95 kg

DRUGS (13)
  1. CANDESARTAN CILEXETIL [Concomitant]
  2. OMEPRAZOLE [Concomitant]
  3. WARFARIN SODIUM [Concomitant]
  4. DAPSONE [Concomitant]
  5. ENALAPRIL MALEATE [Concomitant]
     Dosage: 5 MG, UNK
  6. ONDANSETRON [Concomitant]
     Dosage: 8 MG, TID
  7. MYCOPHENOLIC ACID [Suspect]
     Indication: WEGENER'S GRANULOMATOSIS
     Dosage: 1 G, TID
     Dates: start: 20090101
  8. PREDNISOLONE [Concomitant]
     Dosage: 10 MG, UNK
  9. FOLIC ACID [Concomitant]
  10. SODIUM BICARBONATE [Concomitant]
  11. CALCIUM CARBONATE [Concomitant]
     Dosage: 500 MG, BID
  12. DOXYCYCLINE [Concomitant]
  13. METHOTREXATE [Concomitant]
     Dosage: 15 MG, QW
     Dates: start: 20100401

REACTIONS (2)
  - LYMPHOCYTE COUNT DECREASED [None]
  - WEGENER'S GRANULOMATOSIS [None]
